FAERS Safety Report 10138529 (Version 5)
Quarter: 2014Q3

REPORT INFORMATION
  Report Type: Report from Study
  Country: CA (occurrence: CA)
  Receive Date: 20140429
  Receipt Date: 20140731
  Transmission Date: 20150326
  Serious: Yes (Hospitalization, Other)
  Sender: FDA-Public Use
  Company Number: CA-BAYER-2014-059646

PATIENT
  Age: 60 Year
  Sex: Male

DRUGS (3)
  1. STIVARGA [Suspect]
     Active Substance: REGORAFENIB
     Indication: COLORECTAL CANCER METASTATIC
     Dosage: 160 MG, QD
     Route: 048
     Dates: start: 20140416, end: 20140424
  2. STIVARGA [Suspect]
     Active Substance: REGORAFENIB
     Indication: COLORECTAL CANCER METASTATIC
     Dosage: 160 MG, QD
     Route: 048
     Dates: start: 20140522, end: 2014
  3. FRAGMIN [Concomitant]
     Active Substance: DALTEPARIN SODIUM

REACTIONS (8)
  - Pyrexia [None]
  - Abdominal pain [None]
  - Colorectal cancer [None]
  - Rash macular [Unknown]
  - Cholelithiasis [None]
  - Cholecystitis [None]
  - Pneumonia [None]
  - Hypertension [Unknown]

NARRATIVE: CASE EVENT DATE: 2014
